FAERS Safety Report 5037676-4 (Version None)
Quarter: 2006Q2

REPORT INFORMATION
  Report Type: 
  Country: None (occurrence: None)
  Receive Date: 20060601
  Receipt Date: 20060208
  Transmission Date: 20061013
  Serious: No
  Sender: FDA-Public Use
  Company Number: 2006PV008389

PATIENT
  Age: 45 Year
  Sex: Male
  Weight: 136.5327 kg

DRUGS (5)
  1. BYETTA [Suspect]
     Indication: DIABETES MELLITUS NON-INSULIN-DEPENDENT
     Dosage: 5 MCD;BID;SC
     Route: 058
     Dates: start: 20060129
  2. LANTUS [Concomitant]
  3. HUMALOG [Concomitant]
  4. ACTOS /USA/ [Concomitant]
  5. METFORMIN [Concomitant]

REACTIONS (2)
  - BLOOD GLUCOSE INCREASED [None]
  - DYSPEPSIA [None]
